FAERS Safety Report 4332768-7 (Version None)
Quarter: 2004Q1

REPORT INFORMATION
  Report Type: 
  Country: None (occurrence: None)
  Receive Date: 20040330
  Receipt Date: 20040226
  Transmission Date: 20041129
  Serious: Yes (Hospitalization, Other)
  Sender: FDA-Public Use
  Company Number: HQWYE587709APR03

PATIENT
  Age: 48 Year
  Sex: Male

DRUGS (15)
  1. PANTOZOL (PANTOPRAZOLE, TABLET, DELAYED RELEASE) [Suspect]
     Dosage: 40 MG 1 X PER 1 DAY, ORAL
     Route: 048
     Dates: start: 20030118, end: 20030124
  2. PANTOZOL (PANTOPRAZOLE, INJECTION) [Suspect]
     Dosage: 40 MG 1 X PER 1 DAY, INTRAVENOUS
     Route: 042
     Dates: start: 20030125, end: 20030207
  3. UNACID (AMPICILLIN SODIUM/SULBACTAM) [Suspect]
     Indication: STAPHYLOCOCCAL SEPSIS
     Dosage: INTRAVENOUS
     Route: 042
     Dates: start: 20030118, end: 20030121
  4. LASIX [Concomitant]
  5. ACETYLCYSTEINE [Concomitant]
  6. SULTANOL (SALBUTAMOL) [Concomitant]
  7. PULMICORT [Concomitant]
  8. HEPARIN [Concomitant]
  9. DIGITOXIN TAB [Concomitant]
  10. HYDROCORTISONE [Concomitant]
  11. TAZOBAC (PIPERACILLIN/TAZOBACTAM) [Concomitant]
  12. UNSPECIFIED VITAMINS (UNSPECIFIED VITAMINS) [Concomitant]
  13. TAVANIC (LEVOFLOXACIN) [Concomitant]
  14. TARGOCID [Concomitant]
  15. MERONEM (MEROPENEM) [Concomitant]

REACTIONS (11)
  - C-REACTIVE PROTEIN INCREASED [None]
  - CARDIOVERSION [None]
  - CATHETER RELATED INFECTION [None]
  - DERMATITIS EXFOLIATIVE [None]
  - HYPOKALAEMIA [None]
  - OEDEMA PERIPHERAL [None]
  - PHLEBOTHROMBOSIS [None]
  - PULMONARY CONGESTION [None]
  - RECTAL HAEMORRHAGE [None]
  - RHABDOMYOLYSIS [None]
  - STAPHYLOCOCCAL SEPSIS [None]
